FAERS Safety Report 10384446 (Version 1)
Quarter: 2014Q3

REPORT INFORMATION
  Report Type: Spontaneous
  Country: None (occurrence: None)
  Receive Date: 20140812
  Receipt Date: 20140812
  Transmission Date: 20150326
  Serious: Yes (Death, Hospitalization)
  Sender: FDA-Public Use
  Company Number: 153465

PATIENT
  Age: 39 Year
  Sex: Female

DRUGS (1)
  1. ACETAZOLAMIDE. [Suspect]
     Active Substance: ACETAZOLAMIDE
     Indication: SUICIDE ATTEMPT

REACTIONS (11)
  - Completed suicide [None]
  - Toxicity to various agents [None]
  - Hypotension [None]
  - Metabolic acidosis [None]
  - Atrioventricular block complete [None]
  - Drug ineffective [None]
  - Circulatory collapse [None]
  - Intentional overdose [None]
  - Somnolence [None]
  - Hypokinesia [None]
  - Bradycardia [None]
